FAERS Safety Report 10381138 (Version 1)
Quarter: 2014Q3

REPORT INFORMATION
  Report Type: Spontaneous
  Country: US (occurrence: None)
  Receive Date: 20140808
  Receipt Date: 20140808
  Transmission Date: 20150326
  Serious: Yes (Life-Threatening, Hospitalization)
  Sender: FDA-Public Use
  Company Number: 2014COV00079

PATIENT
  Age: 36 Year
  Sex: Female

DRUGS (1)
  1. HYDROXYCHLOROQUINE [Suspect]
     Active Substance: HYDROXYCHLOROQUINE
     Indication: EOSINOPHILIC FASCIITIS

REACTIONS (5)
  - Staphylococcus test positive [None]
  - Toxicity to various agents [None]
  - Febrile neutropenia [None]
  - Septic shock [None]
  - Off label use [None]
